FAERS Safety Report 24610630 (Version 1)
Quarter: 2024Q4

REPORT INFORMATION
  Report Type: Spontaneous
  Country: US (occurrence: US)
  Receive Date: 20241112
  Receipt Date: 20241112
  Transmission Date: 20250114
  Serious: No
  Sender: TEVA
  Company Number: US-TEVA-VS-3258227

PATIENT
  Age: 44 Year
  Sex: Male

DRUGS (2)
  1. AUSTEDO [Suspect]
     Active Substance: DEUTETRABENAZINE
     Indication: Product used for unknown indication
     Dosage: STRENGTH:6MG
     Route: 048
  2. AUSTEDO [Suspect]
     Active Substance: DEUTETRABENAZINE
     Indication: Product used for unknown indication
     Dosage: STRENGTH:6MG
     Route: 048

REACTIONS (4)
  - Anxiety [Unknown]
  - Drug ineffective [Unknown]
  - Depression [Unknown]
  - Inappropriate schedule of product administration [Unknown]
